FAERS Safety Report 7399058-X (Version None)
Quarter: 2011Q1

REPORT INFORMATION
  Report Type: 
  Country: None (occurrence: None)
  Receive Date: 20110328
  Receipt Date: 20110314
  Transmission Date: 20110831
  Serious: Yes (Hospitalization)
  Sender: FDA-Public Use
  Company Number: 2011MA002387

PATIENT
  Age: 85 Year
  Sex: Male

DRUGS (17)
  1. FLOMAX [Concomitant]
  2. RANITIDINE [Concomitant]
  3. DILTIAZEM HYDROCHLORIDE [Suspect]
     Indication: SUPRAVENTRICULAR TACHYCARDIA
  4. PREVACID [Concomitant]
  5. LORAZEPAM [Concomitant]
  6. FENTANYL TRANSDERMAL SYSTE, 25 MCG/HOUR, (ASALLC) [Suspect]
     Indication: BACK PAIN
     Dosage: 25 UG, QH; IV
     Route: 042
  7. FENTANYL TRANSDERMAL SYSTE, 25 MCG/HOUR, (ASALLC) [Suspect]
     Indication: LUNG CANCER METASTATIC
     Dosage: 25 UG, QH; IV
     Route: 042
  8. FENTANYL TRANSDERMAL SYSTE, 25 MCG/HOUR, (ASALLC) [Suspect]
     Indication: MUSCULOSKELETAL CHEST PAIN
     Dosage: 25 UG, QH; IV
     Route: 042
  9. PIPERACILLIN AND TAZOBACTAM [Concomitant]
  10. VINORELBINE [Concomitant]
  11. COLACE [Concomitant]
  12. VANCOMYCIN [Concomitant]
  13. OXYCODONE HCL [Suspect]
     Indication: LUNG CANCER METASTATIC
     Dosage: 30 MG, Q4H;
  14. OXYCODONE HCL [Suspect]
     Indication: BACK PAIN
     Dosage: 30 MG, Q4H;
  15. OXYCODONE HCL [Suspect]
     Indication: MUSCULOSKELETAL CHEST PAIN
     Dosage: 30 MG, Q4H;
  16. HALOPERIDOL [Concomitant]
  17. GEMCITABINE [Concomitant]

REACTIONS (18)
  - DECREASED ACTIVITY [None]
  - URINARY TRACT INFECTION [None]
  - SUPRAVENTRICULAR TACHYCARDIA [None]
  - BLOOD CREATINE INCREASED [None]
  - DEHYDRATION [None]
  - PERSECUTORY DELUSION [None]
  - DELIRIUM [None]
  - PNEUMONIA [None]
  - AGITATION [None]
  - HAEMOGLOBIN DECREASED [None]
  - DRUG INTERACTION [None]
  - AGGRESSION [None]
  - BEDRIDDEN [None]
  - CLOSTRIDIUM DIFFICILE COLITIS [None]
  - CONFUSIONAL STATE [None]
  - HALLUCINATION [None]
  - SOMNOLENCE [None]
  - MIOSIS [None]
